FAERS Safety Report 4402198-8 (Version None)
Quarter: 2004Q3

REPORT INFORMATION
  Report Type: 
  Country: None (occurrence: None)
  Receive Date: 20040720
  Receipt Date: 20020516
  Transmission Date: 20050211
  Serious: Yes (Death, Hospitalization)
  Sender: FDA-Public Use
  Company Number: US-MERCK-0205USA02003

PATIENT
  Age: 76 Year
  Sex: Female
  Weight: 48 kg

DRUGS (33)
  1. TYLENOL [Concomitant]
     Route: 065
  2. VICODIN [Concomitant]
     Route: 065
  3. ASPIRIN [Concomitant]
     Route: 048
  4. CALCIUM (UNSPECIFIED) [Concomitant]
     Route: 065
  5. DIGOXIN [Concomitant]
     Route: 048
     Dates: start: 19890401
  6. DIGOXIN [Concomitant]
     Route: 048
  7. PREMARIN [Concomitant]
     Route: 065
  8. FOLIC ACID [Concomitant]
     Route: 065
  9. LASIX [Concomitant]
     Indication: CARDIAC FAILURE CONGESTIVE
     Route: 048
  10. LASIX [Concomitant]
     Route: 048
  11. LASIX [Concomitant]
     Route: 042
     Dates: start: 20000201
  12. LASIX [Concomitant]
     Route: 048
  13. INSULIN, ISOPHANE [Concomitant]
     Indication: DIABETES MELLITUS
     Route: 058
  14. IRON (UNSPECIFIED) [Concomitant]
     Route: 065
  15. ISORDIL [Concomitant]
     Route: 048
  16. ZESTRIL [Concomitant]
     Route: 048
  17. MEVACOR [Concomitant]
     Indication: HYPERLIPIDAEMIA
     Route: 048
  18. PROVERA [Concomitant]
     Route: 065
  19. PROVERA [Concomitant]
     Route: 065
  20. PENTASA [Concomitant]
     Indication: CROHN'S DISEASE
     Route: 048
  21. LOPRESSOR [Concomitant]
     Indication: CHEST PAIN
     Route: 042
  22. LOPRESSOR [Concomitant]
     Route: 048
  23. LOPRESSOR [Concomitant]
     Indication: ELECTROCARDIOGRAM ST SEGMENT DEPRESSION
     Route: 042
  24. LOPRESSOR [Concomitant]
     Route: 048
  25. NITROGLYCERIN [Concomitant]
     Indication: CHEST PAIN
     Route: 060
  26. POTASSIUM (UNSPECIFIED) [Concomitant]
     Route: 065
  27. PREDNISONE [Concomitant]
     Indication: ARTHRITIS
     Route: 048
  28. PYRIDOXINE [Concomitant]
     Route: 065
  29. VIOXX [Suspect]
     Indication: ARTHRITIS
     Route: 048
     Dates: start: 19991001, end: 20000301
  30. VIOXX [Suspect]
     Indication: PAIN
     Route: 048
     Dates: start: 19991001, end: 20000301
  31. TOLINASE [Concomitant]
     Route: 048
  32. VITAMIN E [Concomitant]
     Route: 065
  33. VITAMINS (UNSPECIFIED) [Concomitant]
     Route: 065

REACTIONS (26)
  - ANAL FISTULA [None]
  - ANXIETY [None]
  - ARTHRITIS [None]
  - CARDIAC FAILURE CONGESTIVE [None]
  - CARDIO-RESPIRATORY ARREST [None]
  - CEREBROVASCULAR DISORDER [None]
  - CONDITION AGGRAVATED [None]
  - CORONARY ARTERY DISEASE [None]
  - CULTURE URINE POSITIVE [None]
  - DEPRESSION [None]
  - DIZZINESS [None]
  - GALLBLADDER DISORDER [None]
  - HEADACHE [None]
  - HYPERKALAEMIA [None]
  - HYPOTENSION [None]
  - INJURY [None]
  - INSOMNIA [None]
  - LETHARGY [None]
  - MALAISE [None]
  - NAUSEA [None]
  - PNEUMONIA [None]
  - RENAL FAILURE ACUTE [None]
  - SEPSIS [None]
  - URINARY TRACT INFECTION [None]
  - UTERINE LEIOMYOMA [None]
  - VOMITING [None]
